FAERS Safety Report 6567399-1 (Version None)
Quarter: 2010Q1

REPORT INFORMATION
  Report Type: 
  Country: None (occurrence: None)
  Receive Date: 20100202
  Receipt Date: 20100125
  Transmission Date: 20100710
  Serious: Yes (Death, Hospitalization, Other)
  Sender: FDA-Public Use
  Company Number: US-BAXTER-2010BH001552

PATIENT
  Age: 75 Year
  Sex: Female

DRUGS (1)
  1. DIANEAL [Suspect]
     Indication: PERITONEAL DIALYSIS
     Route: 033
     Dates: start: 20090101, end: 20100101

REACTIONS (5)
  - CARDIO-RESPIRATORY ARREST [None]
  - CERVICAL VERTEBRAL FRACTURE [None]
  - DEATH [None]
  - INJURY [None]
  - ROAD TRAFFIC ACCIDENT [None]
